FAERS Safety Report 7238382-8 (Version None)
Quarter: 2011Q1

REPORT INFORMATION
  Report Type: 
  Country: None (occurrence: None)
  Receive Date: 20110121
  Receipt Date: 20110114
  Transmission Date: 20110831
  Serious: Yes (Hospitalization, Other)
  Sender: FDA-Public Use
  Company Number: ES-CEPHALON-2011000321

PATIENT
  Sex: Male
  Weight: 70 kg

DRUGS (2)
  1. BENDAMUSTINE HCL [Suspect]
     Indication: B-CELL LYMPHOMA
     Route: 042
     Dates: start: 20100309, end: 20100601
  2. RITUXIMAB [Suspect]
     Indication: B-CELL LYMPHOMA
     Route: 042
     Dates: start: 20100309, end: 20100601

REACTIONS (2)
  - ACTINIC KERATOSIS [None]
  - SQUAMOUS CELL CARCINOMA [None]
